FAERS Safety Report 9122342 (Version 2)
Quarter: 2013Q1

REPORT INFORMATION
  Report Type: Spontaneous
  Country: FR (occurrence: FR)
  Receive Date: 20130227
  Receipt Date: 20130320
  Transmission Date: 20140127
  Serious: Yes (Hospitalization)
  Sender: FDA-Public Use
  Company Number: FR-009507513-1302FRA009043

PATIENT
  Age: 61 Year
  Sex: Female
  Weight: 65 kg

DRUGS (3)
  1. VICTRELIS [Suspect]
     Indication: HEPATITIS C
     Dosage: 2400 MG, UNKNOWN
     Route: 048
     Dates: start: 20120703, end: 20130122
  2. PEGASYS [Suspect]
     Indication: HEPATITIS C
     Dosage: 135 MICROGRAM, UNKNOWN
     Route: 058
     Dates: start: 20120603, end: 20130122
  3. COPEGUS [Concomitant]
     Indication: HEPATITIS C
     Dosage: 800 MG, UNKNOWN
     Route: 048
     Dates: start: 20120603, end: 20130122

REACTIONS (2)
  - Bone marrow failure [Recovered/Resolved]
  - Hypothyroidism [Recovered/Resolved]
